FAERS Safety Report 9160778 (Version 2)
Quarter: 2013Q1

REPORT INFORMATION
  Report Type: Spontaneous
  Country: US (occurrence: US)
  Receive Date: 20130313
  Receipt Date: 20130318
  Transmission Date: 20140127
  Serious: Yes (Death)
  Sender: FDA-Public Use
  Company Number: US-PFIZER INC-2013081918

PATIENT
  Age: 59 Year
  Sex: Female

DRUGS (1)
  1. REVATIO [Suspect]
     Indication: PULMONARY HYPERTENSION
     Dosage: 40 MG (2-20MG TABLETS), 3X/DAY
     Dates: start: 20110909

REACTIONS (1)
  - Renal failure [Fatal]
